FAERS Safety Report 6347925-8 (Version None)
Quarter: 2009Q3

REPORT INFORMATION
  Report Type: 
  Country: None (occurrence: None)
  Receive Date: 20090910
  Receipt Date: 20090902
  Transmission Date: 20100115
  Serious: Yes (Other)
  Sender: FDA-Public Use
  Company Number: PHHY2009DE26634

PATIENT
  Sex: Male
  Weight: 90 kg

DRUGS (9)
  1. VOLTAREN [Suspect]
     Indication: BONE PAIN
     Dosage: ONCE/SINGLE, 15 YEARS AGO
     Route: 048
     Dates: start: 19990101, end: 20090627
  2. VOLTAREN [Suspect]
     Dosage: 1 DF, PRN
     Route: 048
     Dates: start: 19990101, end: 20090627
  3. ALLOPURINOL [Concomitant]
     Indication: HYPERURICAEMIA
     Dosage: 100 MG, QD
     Dates: start: 19950101
  4. ASPIRIN [Concomitant]
     Indication: ANGIOPATHY
     Dosage: 100 MG, QD
     Dates: start: 19980101
  5. VITAMINS [Concomitant]
     Dosage: UNK
     Dates: start: 19980101
  6. CASODEX [Concomitant]
     Dosage: 50 MG, QD
     Dates: start: 20090401
  7. Q10 [Concomitant]
     Dosage: 100 MG, QD
  8. GINGIUM [Concomitant]
     Dosage: 120 MG, QD
  9. PROFACT [Concomitant]
     Dosage: 6.3 MG, 2 MONTH IMPLANT

REACTIONS (19)
  - BLOOD PRESSURE DECREASED [None]
  - DYSPNOEA [None]
  - FLUID RETENTION [None]
  - HEADACHE [None]
  - HYPOTONIA [None]
  - JOINT SWELLING [None]
  - MENINGEAL DISORDER [None]
  - MENINGITIS ASEPTIC [None]
  - MUSCULOSKELETAL STIFFNESS [None]
  - MYALGIA [None]
  - MYOSCLEROSIS [None]
  - OEDEMA PERIPHERAL [None]
  - PARAESTHESIA [None]
  - PENILE OEDEMA [None]
  - SCROTAL OEDEMA [None]
  - SENSORY LOSS [None]
  - SWELLING [None]
  - THERAPEUTIC RESPONSE UNEXPECTED [None]
  - VISION BLURRED [None]
